FAERS Safety Report 9054342 (Version 1)
Quarter: 2013Q1

REPORT INFORMATION
  Report Type: Spontaneous
  Country: US (occurrence: US)
  Receive Date: 20130208
  Receipt Date: 20130208
  Transmission Date: 20140127
  Serious: No
  Sender: FDA-Public Use
  Company Number: US-009507513-1302USA003251

PATIENT
  Age: 47 Year
  Sex: Female

DRUGS (2)
  1. MIRALAX [Suspect]
     Indication: CONSTIPATION
     Dosage: UNK, QD
     Route: 048
  2. MIRALAX [Suspect]
     Dosage: UNK, ONCE
     Route: 048
     Dates: start: 20121207

REACTIONS (1)
  - Overdose [Not Recovered/Not Resolved]
